FAERS Safety Report 12438694 (Version 1)
Quarter: 2016Q2

REPORT INFORMATION
  Report Type: Report from Study
  Country: US (occurrence: US)
  Receive Date: 20160606
  Receipt Date: 20160606
  Transmission Date: 20160815
  Serious: Yes (Hospitalization, Other)
  Sender: FDA-Public Use
  Company Number: US-BAYER-2016-089603

PATIENT
  Age: 69 Year
  Sex: Male

DRUGS (2)
  1. NEXAVAR [Suspect]
     Active Substance: SORAFENIB
     Indication: HEPATOCELLULAR CARCINOMA
     Dosage: 400 MG, BID
     Route: 048
     Dates: start: 201605, end: 20160526
  2. NEXAVAR [Suspect]
     Active Substance: SORAFENIB
     Indication: HEPATOCELLULAR CARCINOMA
     Dosage: 400 MG, BID
     Route: 048
     Dates: start: 20160504, end: 20160510

REACTIONS (11)
  - Porphyria [None]
  - Contusion [None]
  - Suicidal ideation [None]
  - Pancreatitis acute [None]
  - Mucosal inflammation [None]
  - Stomatitis [Recovered/Resolved]
  - Blood glucose increased [None]
  - Vomiting [Not Recovered/Not Resolved]
  - Lipase increased [None]
  - Nausea [None]
  - Constipation [None]

NARRATIVE: CASE EVENT DATE: 201605
